FAERS Safety Report 5863257-6 (Version None)
Quarter: 2008Q3

REPORT INFORMATION
  Report Type: 
  Country: None (occurrence: None)
  Receive Date: 20080828
  Receipt Date: 20080826
  Transmission Date: 20090109
  Serious: Yes (Disabling)
  Sender: FDA-Public Use
  Company Number: JP-WYE-H05302708

PATIENT
  Sex: Female

DRUGS (7)
  1. HYPEN [Suspect]
     Indication: TENSION HEADACHE
     Route: 048
     Dates: start: 20080709, end: 20080720
  2. PRAVASTATIN SODIUM [Suspect]
     Indication: HYPERLIPIDAEMIA
     Route: 048
     Dates: start: 20080716, end: 20080722
  3. ZOLPIDEM TARTRATE [Concomitant]
     Dosage: UNKNOWN
     Route: 048
     Dates: start: 20080101, end: 20080721
  4. ACETYLSALICYLIC ACID SRT [Suspect]
     Route: 048
     Dates: start: 20080601, end: 20080722
  5. ETIZOLAM [Concomitant]
     Dosage: UNKNOWN
     Route: 048
     Dates: start: 20080101, end: 20080721
  6. EPERISONE HYDROCHLORIDE [Concomitant]
     Indication: TENSION HEADACHE
     Dosage: UNKNOWN
     Route: 048
     Dates: start: 20080709, end: 20080722
  7. CARBAMAZEPINE [Suspect]
     Route: 048
     Dates: start: 20080601, end: 20080722

REACTIONS (1)
  - DRUG ERUPTION [None]
